FAERS Safety Report 7471203-7 (Version None)
Quarter: 2011Q2

REPORT INFORMATION
  Report Type: 
  Country: None (occurrence: None)
  Receive Date: 20110510
  Receipt Date: 20110426
  Transmission Date: 20111010
  Serious: No
  Sender: FDA-Public Use
  Company Number: US-B.I. PHARMACEUTICALS,INC./RIDGEFIELD-2011-BP-12510BP

PATIENT
  Sex: Male

DRUGS (1)
  1. ZANTAC 150 [Suspect]

REACTIONS (1)
  - DRUG SCREEN POSITIVE [None]
